FAERS Safety Report 4638992-8 (Version None)
Quarter: 2005Q2

REPORT INFORMATION
  Report Type: 
  Country: None (occurrence: None)
  Receive Date: 20050419
  Receipt Date: 20030508
  Transmission Date: 20051028
  Serious: Yes (Hospitalization)
  Sender: FDA-Public Use
  Company Number: US-ROCHE-337566

PATIENT
  Age: 44 Year
  Sex: Male
  Weight: 72 kg

DRUGS (10)
  1. RIBAVIRIN [Suspect]
     Dosage: IN DIVIDED DOSES.
     Route: 048
     Dates: start: 20020722, end: 20030507
  2. PEG-INTRON [Suspect]
     Route: 058
     Dates: start: 20020722, end: 20030507
  3. PEG-INTRON [Suspect]
     Route: 058
     Dates: end: 20050208
  4. PEG-INTRON [Suspect]
     Route: 058
     Dates: start: 20050314
  5. LISINOPRIL [Concomitant]
  6. AMBIEN [Concomitant]
  7. VICODIN [Concomitant]
  8. MULTI-VITAMIN [Concomitant]
  9. OMEGA VITE [Concomitant]
  10. EXCEDRIN (MIGRAINE) [Concomitant]

REACTIONS (4)
  - CHOLECYSTITIS [None]
  - CHOLELITHIASIS [None]
  - DEHYDRATION [None]
  - GASTRITIS [None]
